FAERS Safety Report 12546466 (Version 2)
Quarter: 2017Q2

REPORT INFORMATION
  Report Type: Report from Study
  Country: GB (occurrence: GB)
  Receive Date: 20160711
  Receipt Date: 20170530
  Transmission Date: 20170830
  Serious: Yes (Hospitalization, Other)
  Sender: FDA-Public Use
  Company Number: PHHY2016GB090820

PATIENT
  Age: 70 Year
  Sex: Female

DRUGS (1)
  1. SOMATROPIN [Suspect]
     Active Substance: SOMATROPIN
     Indication: GROWTH HORMONE DEFICIENCY
     Dosage: 0.3 MG/KG, QD
     Route: 058
     Dates: start: 20130204

REACTIONS (6)
  - Nerve root compression [Not Recovered/Not Resolved]
  - Radicular pain [Not Recovered/Not Resolved]
  - Spondylolisthesis [Recovered/Resolved]
  - Back pain [Not Recovered/Not Resolved]
  - Intervertebral disc protrusion [Recovered/Resolved]
  - Lumbar spinal stenosis [Recovered/Resolved]

NARRATIVE: CASE EVENT DATE: 20150805
